FAERS Safety Report 9621509 (Version 1)
Quarter: 2013Q4

REPORT INFORMATION
  Report Type: Spontaneous
  Country: US (occurrence: US)
  Receive Date: 20131015
  Receipt Date: 20131015
  Transmission Date: 20140711
  Serious: Yes (Other)
  Sender: FDA-Public Use
  Company Number: US-BAYER-2013-122865

PATIENT
  Age: 72 Year
  Sex: Male
  Weight: 88.89 kg

DRUGS (4)
  1. PHILLIPS^ MILK OF MAGNESIA [Suspect]
     Indication: CONSTIPATION
     Dosage: 2 TBSP, UNK
     Route: 048
     Dates: start: 2009
  2. ALTACE [Concomitant]
  3. ECOTRIN [Concomitant]
  4. PREVACID [Concomitant]

REACTIONS (2)
  - Drug dependence [Not Recovered/Not Resolved]
  - Drug effect delayed [None]
